FAERS Safety Report 9785191 (Version 1)
Quarter: 2013Q4

REPORT INFORMATION
  Report Type: Spontaneous
  Country: US (occurrence: None)
  Receive Date: 20131224
  Receipt Date: 20131224
  Transmission Date: 20140711
  Serious: Yes (Hospitalization, Other)
  Sender: FDA-Public Use
  Company Number: 2013STPI000519

PATIENT
  Age: 9 Year
  Sex: Male
  Weight: 53.5 kg

DRUGS (9)
  1. ONCASPAR [Suspect]
     Indication: ACUTE MYELOID LEUKAEMIA
     Dosage: 2500 IU/M2, X1, INTRAMUSCULAR
     Dates: start: 200901, end: 200901
  2. VINCRISTINE SULFATE (VINCRISTINE SULFATE) [Concomitant]
  3. DAUNORUBICIN HCL (DAUNORUBICIN HYDROCHLORIDE) [Concomitant]
  4. PREDNISONE (PREDNISONE) [Concomitant]
  5. CYTARABINE (CYTARABINE) [Concomitant]
  6. CYTARABINE (CYTARABINE) [Concomitant]
  7. METHOTREXATE SODIUUM (METHOTREXATE SODIUM) [Concomitant]
  8. CYCLOPHOSPHMIDE DCI (CYCLOPHOSPHAMIDE) [Concomitant]
  9. MERCAPTOPURINE (MERCAPTOPURINE) [Concomitant]

REACTIONS (4)
  - Hypertriglyceridaemia [None]
  - Trichosporon infection [None]
  - Escherichia sepsis [None]
  - Enterococcal sepsis [None]
